FAERS Safety Report 7418491-0 (Version None)
Quarter: 2011Q2

REPORT INFORMATION
  Report Type: 
  Country: None (occurrence: None)
  Receive Date: 20110415
  Receipt Date: 20110408
  Transmission Date: 20111010
  Serious: Yes (Hospitalization)
  Sender: FDA-Public Use
  Company Number: IT-MERCK-1104ITA00016

PATIENT
  Age: 64 Year
  Sex: Male

DRUGS (10)
  1. HYDROXYUREA [Concomitant]
     Route: 065
  2. ALLOPURINOL [Concomitant]
     Route: 065
  3. JANUMET [Suspect]
     Indication: DIABETES MELLITUS
     Route: 048
     Dates: start: 20090101, end: 20100401
  4. THEOPHYLLINE [Concomitant]
     Route: 065
  5. TIOTROPIUM BROMIDE [Concomitant]
     Route: 065
  6. HYDROCHLOROTHIAZIDE [Suspect]
     Route: 065
  7. FUROSEMIDE [Suspect]
     Route: 065
     Dates: end: 20100401
  8. LANSOPRAZOLE [Concomitant]
     Route: 065
  9. ATENOLOL AND CHLORTHALIDONE [Suspect]
     Route: 048
     Dates: end: 20100401
  10. ASPIRIN [Concomitant]
     Route: 065

REACTIONS (6)
  - HYPOKALAEMIA [None]
  - DYSPEPSIA [None]
  - DECREASED APPETITE [None]
  - HEADACHE [None]
  - WEIGHT DECREASED [None]
  - HYPOMAGNESAEMIA [None]
